FAERS Safety Report 5124827-6 (Version None)
Quarter: 2006Q4

REPORT INFORMATION
  Report Type: 
  Country: None (occurrence: None)
  Receive Date: 20061011
  Receipt Date: 20060921
  Transmission Date: 20070319
  Serious: Yes (Hospitalization)
  Sender: FDA-Public Use
  Company Number: JP-ROCHE-464371

PATIENT
  Age: 79 Year
  Sex: Male

DRUGS (12)
  1. PANALDINE [Suspect]
     Indication: THROMBOSIS PROPHYLAXIS
     Route: 048
     Dates: start: 20060106, end: 20060126
  2. GASTER D [Concomitant]
     Route: 048
     Dates: start: 20020615, end: 20060126
  3. LANDSEN [Concomitant]
     Route: 048
     Dates: start: 20020615, end: 20060117
  4. TEGRETOL [Concomitant]
     Route: 048
     Dates: start: 20020615, end: 20060717
  5. ASPIRIN [Concomitant]
     Route: 048
     Dates: start: 20030615
  6. ARTIST [Concomitant]
     Route: 048
     Dates: start: 20041125
  7. BLOPRESS [Concomitant]
     Route: 048
     Dates: start: 20041216
  8. NORVASC [Concomitant]
     Route: 048
     Dates: start: 20050901
  9. VEGETAMIN [Concomitant]
     Route: 048
     Dates: start: 20051215, end: 20060126
  10. PURSENNID [Concomitant]
     Route: 048
     Dates: start: 20060101
  11. FLIVAS [Concomitant]
     Dates: start: 20060104
  12. HALOPERIDOL [Concomitant]
     Route: 048
     Dates: start: 20060109, end: 20060117

REACTIONS (3)
  - C-REACTIVE PROTEIN INCREASED [None]
  - INFLUENZA SEROLOGY POSITIVE [None]
  - PYREXIA [None]
